FAERS Safety Report 10178668 (Version 1)
Quarter: 2014Q2

REPORT INFORMATION
  Report Type: Spontaneous
  Country: US (occurrence: None)
  Receive Date: 20140416
  Receipt Date: 20140416
  Transmission Date: 20141212
  Serious: Yes (Other)
  Sender: FDA-Public Use
  Company Number: 163-POMAL-13120543

PATIENT
  Age: 65 Year
  Sex: Female
  Weight: 63.5 kg

DRUGS (9)
  1. POMALYST (POMALIDOMIDE) (4 MILLIGRAM, CAPSULES) [Suspect]
     Indication: PLASMA CELL MYELOMA
     Route: 048
     Dates: start: 201308
  2. VISICARE (SOLIFENACIN SUCCINTE) [Concomitant]
  3. ZOMETA (ZOLEDRONIC ACID) [Concomitant]
  4. CENTRUM MULTI (CENTRUM) [Concomitant]
  5. CALTRATE 600 + D (CALCITE D) [Concomitant]
  6. AMLODIPINE (AMLODIPINE) [Concomitant]
  7. DEXAMETHASONE (DEXAMETHASONE) [Concomitant]
  8. ASPIRINE (ACETYLSALICYLIC ACID) [Concomitant]
  9. OMEPRAZOLE (OMEPRAZOLE) [Concomitant]

REACTIONS (3)
  - Pain in extremity [None]
  - Dyspepsia [None]
  - Hypoaesthesia [None]
